FAERS Safety Report 24260985 (Version 2)
Quarter: 2024Q4

REPORT INFORMATION
  Report Type: Spontaneous
  Country: DE (occurrence: DE)
  Receive Date: 20240829
  Receipt Date: 20241129
  Transmission Date: 20250115
  Serious: Yes (Other)
  Sender: JOHNSON AND JOHNSON
  Company Number: DE-DCGMA-24203764

PATIENT
  Age: 27 Year
  Sex: Female

DRUGS (2)
  1. VERMOX [Suspect]
     Active Substance: MEBENDAZOLE
     Indication: Enterobiasis
     Route: 048
     Dates: start: 20240719, end: 20240721
  2. VERMOX [Suspect]
     Active Substance: MEBENDAZOLE
     Route: 048
     Dates: start: 20240705, end: 20240707

REACTIONS (1)
  - Eye haematoma [Not Recovered/Not Resolved]

NARRATIVE: CASE EVENT DATE: 20240803
